FAERS Safety Report 18877822 (Version 1)
Quarter: 2021Q1

REPORT INFORMATION
  Report Type: Spontaneous
  Country: US (occurrence: US)
  Receive Date: 20210210
  Receipt Date: 20210210
  Transmission Date: 20210420
  Serious: Yes (Hospitalization)
  Sender: FDA-Public Use
  Company Number: None

PATIENT
  Age: 43 Year
  Sex: Female

DRUGS (7)
  1. DAPSONE. [Concomitant]
     Active Substance: DAPSONE
  2. ACYCLOVIR. [Concomitant]
     Active Substance: ACYCLOVIR
  3. PROMACTA [Suspect]
     Active Substance: ELTROMBOPAG OLAMINE
     Indication: APLASIA PURE RED CELL
     Dosage: ?          OTHER DOSE:2 TABS;?
     Route: 048
     Dates: start: 20201006
  4. TACROLIMUS. [Concomitant]
     Active Substance: TACROLIMUS
  5. CEFEPIME [Concomitant]
     Active Substance: CEFEPIME HYDROCHLORIDE
  6. POT CHLORIDE ER [Concomitant]
  7. PROTONIX [Concomitant]
     Active Substance: PANTOPRAZOLE SODIUM

REACTIONS (1)
  - Hospitalisation [None]

NARRATIVE: CASE EVENT DATE: 20210209
